FAERS Safety Report 19905707 (Version 1)
Quarter: 2021Q3

REPORT INFORMATION
  Report Type: Spontaneous
  Country: US (occurrence: US)
  Receive Date: 20210930
  Receipt Date: 20210930
  Transmission Date: 20211014
  Serious: No
  Sender: FDA-Public Use
  Company Number: US-PFIZER INC-2020220069

PATIENT
  Age: 63 Year
  Sex: Female
  Weight: 40.82 kg

DRUGS (3)
  1. NARDIL [Suspect]
     Active Substance: PHENELZINE SULFATE
     Indication: DEPRESSION
     Dosage: 15 MG, TWICE DAILY
     Route: 048
     Dates: end: 20210628
  2. TENORMIN [Concomitant]
     Active Substance: ATENOLOL
     Indication: SINUS TACHYCARDIA
     Dosage: UNK
  3. NARDIL [Suspect]
     Active Substance: PHENELZINE SULFATE
     Indication: ANXIETY
     Dosage: UNK
     Dates: end: 202008

REACTIONS (3)
  - Decreased appetite [Unknown]
  - Intentional product use issue [Unknown]
  - Weight decreased [Unknown]

NARRATIVE: CASE EVENT DATE: 2021
